FAERS Safety Report 7714563-1 (Version None)
Quarter: 2011Q3

REPORT INFORMATION
  Report Type: 
  Country: None (occurrence: None)
  Receive Date: 20110822
  Receipt Date: 20110805
  Transmission Date: 20111222
  Serious: Yes (Death)
  Sender: FDA-Public Use
  Company Number: 2011MA011491

PATIENT
  Age: 32 Year
  Sex: Male

DRUGS (5)
  1. ALPRAZOLAM [Suspect]
  2. METHAMPHETAMINE HYDROCHLORIDE [Suspect]
  3. DIAZEPAM [Suspect]
  4. 3,4 METHYLENEDIOXYMETHAMPHETAMINE (NO PREF. NAME) [Suspect]
  5. METHADONE HCL [Suspect]

REACTIONS (3)
  - MULTIPLE INJURIES [None]
  - ROAD TRAFFIC ACCIDENT [None]
  - HEPATITIS C [None]
